FAERS Safety Report 8051203-9 (Version None)
Quarter: 2012Q1

REPORT INFORMATION
  Report Type: 
  Country: None (occurrence: None)
  Receive Date: 20120117
  Receipt Date: 20120116
  Transmission Date: 20120608
  Serious: Yes (Death, Hospitalization, Other)
  Sender: FDA-Public Use
  Company Number: PHEH2007US03752

PATIENT
  Sex: Male

DRUGS (11)
  1. EFFEXOR [Concomitant]
     Dosage: 25 MG, QD
  2. PREDNISONE [Concomitant]
     Dosage: 10 MG, BID
  3. OXYCONTIN [Concomitant]
     Dosage: 10 MG, Q12H
  4. ZOMETA [Suspect]
     Dosage: UNK
     Dates: start: 20040901, end: 20060701
  5. EFUDEX [Concomitant]
  6. ZOFRAN [Concomitant]
     Dosage: 8 MG, TID
  7. FLOMAX [Concomitant]
     Dosage: 0.4 MG, QD
  8. NAPROXEN (ALEVE) [Concomitant]
  9. KYTRIL [Concomitant]
     Dosage: 1 MG, Q12H
  10. COMPAZINE [Concomitant]
     Dosage: 10 MG, Q14H, PRN
  11. SENOKOT [Concomitant]
     Dosage: UNK

REACTIONS (26)
  - GENERAL PHYSICAL HEALTH DETERIORATION [None]
  - BONE LESION [None]
  - FACET JOINT SYNDROME [None]
  - PAIN IN JAW [None]
  - ANAEMIA [None]
  - DEATH [None]
  - INTERVERTEBRAL DISC PROTRUSION [None]
  - COLONIC OBSTRUCTION [None]
  - CONSTIPATION [None]
  - URINARY RETENTION [None]
  - BONE DISORDER [None]
  - SPINAL DISORDER [None]
  - PAIN [None]
  - RADICULOPATHY [None]
  - SPINAL COLUMN STENOSIS [None]
  - AEROPHAGIA [None]
  - BONE MARROW OEDEMA [None]
  - OSTEONECROSIS OF JAW [None]
  - ANXIETY [None]
  - DECREASED INTEREST [None]
  - DYSPNOEA EXERTIONAL [None]
  - METASTASES TO BONE [None]
  - BACK PAIN [None]
  - HYPOAESTHESIA [None]
  - INTERVERTEBRAL DISC DEGENERATION [None]
  - FALL [None]
